FAERS Safety Report 12563127 (Version 3)
Quarter: 2017Q2

REPORT INFORMATION
  Report Type: Spontaneous
  Country: BR (occurrence: BR)
  Receive Date: 20160715
  Receipt Date: 20170605
  Transmission Date: 20170830
  Serious: Yes (Hospitalization)
  Sender: FDA-Public Use
  Company Number: BR-SA-2015SA149864

PATIENT
  Sex: Female
  Weight: 60 kg

DRUGS (3)
  1. ENOXAPARIN SODIUM. [Suspect]
     Active Substance: ENOXAPARIN SODIUM
     Indication: HYPERCOAGULATION
  2. FOLIC ACID. [Concomitant]
     Active Substance: FOLIC ACID
     Route: 048
  3. UTROGESTAN [Concomitant]
     Active Substance: PROGESTERONE
     Route: 067
     Dates: start: 20150925

REACTIONS (2)
  - Exposure during pregnancy [Unknown]
  - Abortion early [Unknown]
